FAERS Safety Report 13783443 (Version 1)
Quarter: 2017Q3

REPORT INFORMATION
  Report Type: Spontaneous
  Country: US (occurrence: US)
  Receive Date: 20170724
  Receipt Date: 20170724
  Transmission Date: 20171127
  Serious: No
  Sender: FDA-Public Use
  Company Number: US-IMPAX LABORATORIES, INC-2016-IPXL-00887

PATIENT
  Age: 44 Year
  Sex: Female
  Weight: 61 kg

DRUGS (3)
  1. TRAZODONE [Concomitant]
     Active Substance: TRAZODONE HYDROCHLORIDE
     Indication: INSOMNIA
     Dosage: UNK
     Route: 065
  2. HORIZANT [Concomitant]
     Active Substance: GABAPENTIN ENACARBIL
     Indication: RESTLESS LEGS SYNDROME
     Dosage: UNK
     Route: 065
  3. MIDODRINE HYDROCHLORIDE. [Suspect]
     Active Substance: MIDODRINE HYDROCHLORIDE
     Indication: HYPOTENSION
     Dosage: 5 MG, AT NIGHT
     Route: 048
     Dates: start: 20160803, end: 20160803

REACTIONS (1)
  - Paraesthesia [Recovered/Resolved]

NARRATIVE: CASE EVENT DATE: 20160803
